FAERS Safety Report 4862090-1 (Version None)
Quarter: 2005Q4

REPORT INFORMATION
  Report Type: 
  Country: None (occurrence: None)
  Receive Date: 20051221
  Receipt Date: 20051216
  Transmission Date: 20060501
  Serious: Yes (Hospitalization)
  Sender: FDA-Public Use
  Company Number: JP-BOEHRINGER INGELHEIM PHARMACEUTICALS, INC.-2005-BP-21618YA

PATIENT
  Age: 80 Year
  Sex: Male

DRUGS (4)
  1. HARNAL D (TAMSULOSIN HYDROCHLORIDE) [Suspect]
     Route: 048
     Dates: start: 20050101, end: 20051209
  2. TALIPEXOLE HYDROCHLORIDE [Concomitant]
     Route: 048
     Dates: end: 20051209
  3. DROXIDOPA [Concomitant]
     Route: 048
     Dates: end: 20051209
  4. ASPIRIN [Concomitant]
     Route: 048
     Dates: end: 20051209

REACTIONS (1)
  - INTERSTITIAL LUNG DISEASE [None]
